FAERS Safety Report 9883358 (Version 4)
Quarter: 2014Q3

REPORT INFORMATION
  Report Type: Spontaneous
  Country: US (occurrence: US)
  Receive Date: 20140210
  Receipt Date: 20140714
  Transmission Date: 20150326
  Serious: Yes (Hospitalization)
  Sender: FDA-Public Use
  Company Number: US-BEH-2014040460

PATIENT
  Sex: Female
  Weight: 68 kg

DRUGS (2)
  1. PRIVIGEN [Suspect]
     Active Substance: HUMAN IMMUNOGLOBULIN G
     Indication: COMBINED IMMUNODEFICIENCY
     Dosage: STOPPED DEC-2013;  60 GM (30 GM X 2 DAYS) MONTHLY.
     Route: 042
  2. PRIVIGEN [Suspect]
     Active Substance: HUMAN IMMUNOGLOBULIN G
     Indication: HYPOGAMMAGLOBULINAEMIA
     Dosage: STOPPED DEC-2013;  60 GM (30 GM X 2 DAYS) MONTHLY.
     Route: 042

REACTIONS (2)
  - Sinusitis [Unknown]
  - Malaise [Unknown]
